FAERS Safety Report 11348041 (Version 1)
Quarter: 2015Q3

REPORT INFORMATION
  Report Type: Spontaneous
  Country: US (occurrence: US)
  Receive Date: 20150803
  Receipt Date: 20150803
  Transmission Date: 20151125
  Serious: Yes (Other)
  Sender: FDA-Public Use
  Company Number: US-ELI_LILLY_AND_COMPANY-US201112002202

PATIENT
  Sex: Male

DRUGS (2)
  1. ZYPREXA [Suspect]
     Active Substance: OLANZAPINE
     Indication: BIPOLAR DISORDER
     Dosage: 20 MG, QD
     Dates: start: 2002, end: 2011
  2. ZYPREXA [Suspect]
     Active Substance: OLANZAPINE
     Dosage: 1 DF, UNK
     Dates: start: 20111204

REACTIONS (6)
  - Suicidal ideation [Recovered/Resolved]
  - Drug withdrawal syndrome [Unknown]
  - Malaise [Unknown]
  - Influenza like illness [Unknown]
  - Vomiting [Recovered/Resolved]
  - Headache [Unknown]

NARRATIVE: CASE EVENT DATE: 2011
